FAERS Safety Report 9028683 (Version 3)
Quarter: 2013Q1

REPORT INFORMATION
  Report Type: Report from Study
  Country: NZ (occurrence: NZ)
  Receive Date: 20130124
  Receipt Date: 20130327
  Transmission Date: 20140127
  Serious: Yes (Death)
  Sender: FDA-Public Use
  Company Number: PHHY2013NZ006360

PATIENT
  Age: 83 Year
  Sex: Female

DRUGS (2)
  1. CLOZARIL [Suspect]
     Indication: SCHIZOPHRENIA
     Dosage: 75 MG, AT NIGHT
     Route: 048
     Dates: start: 20110810
  2. TRIAZOLAM [Concomitant]
     Indication: ANXIETY
     Dosage: 0.125 MG, QD
     Route: 048

REACTIONS (2)
  - Myocardial infarction [Fatal]
  - Overweight [Unknown]
